FAERS Safety Report 4540861-9 (Version None)
Quarter: 2004Q4

REPORT INFORMATION
  Report Type: 
  Country: None (occurrence: None)
  Receive Date: 20041228
  Receipt Date: 20041223
  Transmission Date: 20050328
  Serious: Yes (Life-Threatening, Hospitalization)
  Sender: FDA-Public Use
  Company Number: 2004CG02127

PATIENT
  Age: 57 Year
  Sex: Male

DRUGS (8)
  1. DIPRIVAN [Suspect]
     Indication: LIGHT ANAESTHESIA
     Dates: start: 20041018, end: 20041018
  2. DIPRIVAN [Suspect]
     Indication: SEDATIVE THERAPY
     Dates: start: 20041018, end: 20041018
  3. ATACAND [Concomitant]
  4. ELISOR [Concomitant]
  5. KARDEGIC/FRA/ [Concomitant]
  6. AMLODIPINE [Concomitant]
  7. ALLOPURINOL [Concomitant]
  8. HYPNOVEL [Concomitant]

REACTIONS (5)
  - ANURIA [None]
  - BILE DUCT STONE [None]
  - PANCREATITIS ACUTE [None]
  - POST PROCEDURAL COMPLICATION [None]
  - SHOCK [None]
